FAERS Safety Report 20453576 (Version 1)
Quarter: 2022Q1

REPORT INFORMATION
  Report Type: Spontaneous
  Country: AU (occurrence: AU)
  Receive Date: 20220210
  Receipt Date: 20220210
  Transmission Date: 20220423
  Serious: Yes (Hospitalization, Other)
  Sender: FDA-Public Use
  Company Number: None

PATIENT
  Age: 36 Year
  Sex: Male

DRUGS (20)
  1. LINEZOLID [Suspect]
     Active Substance: LINEZOLID
     Indication: Encephalitis
     Dosage: UNK
     Route: 065
  2. LINEZOLID [Suspect]
     Active Substance: LINEZOLID
     Indication: Evidence based treatment
  3. AMIKACIN [Concomitant]
     Active Substance: AMIKACIN
     Indication: Encephalitis
     Dosage: UNK
     Route: 065
  4. AMIKACIN [Concomitant]
     Active Substance: AMIKACIN
     Indication: Evidence based treatment
  5. BEDAQUILINE [Concomitant]
     Active Substance: BEDAQUILINE
     Indication: Disseminated tuberculosis
     Dosage: UNK
     Route: 065
  6. BEDAQUILINE [Concomitant]
     Active Substance: BEDAQUILINE
     Indication: Tuberculoma of central nervous system
  7. BEDAQUILINE [Concomitant]
     Active Substance: BEDAQUILINE
     Indication: Meningitis tuberculous
  8. CLOFAZIMINE [Concomitant]
     Active Substance: CLOFAZIMINE
     Indication: Disseminated tuberculosis
     Dosage: UNK
     Route: 065
  9. CLOFAZIMINE [Concomitant]
     Active Substance: CLOFAZIMINE
     Indication: Meningitis tuberculous
  10. CLOFAZIMINE [Concomitant]
     Active Substance: CLOFAZIMINE
     Indication: Tuberculoma of central nervous system
  11. INFLIXIMAB [Concomitant]
     Active Substance: INFLIXIMAB
     Indication: Meningitis tuberculous
     Dosage: 30 MG/KG, EVERY ONE MONTH
     Route: 065
  12. INFLIXIMAB [Concomitant]
     Active Substance: INFLIXIMAB
     Indication: Tuberculoma of central nervous system
  13. INFLIXIMAB [Concomitant]
     Active Substance: INFLIXIMAB
     Indication: Disseminated tuberculosis
  14. MOXIFLOXACIN [Concomitant]
     Active Substance: MOXIFLOXACIN
     Indication: Encephalitis
     Dosage: UNK
     Route: 065
  15. MOXIFLOXACIN [Concomitant]
     Active Substance: MOXIFLOXACIN
     Indication: Evidence based treatment
  16. PROTIONAMIDE [Concomitant]
     Active Substance: PROTIONAMIDE
     Indication: Encephalitis
     Dosage: UNK
     Route: 065
  17. PROTIONAMIDE [Concomitant]
     Active Substance: PROTIONAMIDE
     Indication: Evidence based treatment
  18. PYRAZINAMIDE [Concomitant]
     Active Substance: PYRAZINAMIDE
     Indication: Tuberculoma of central nervous system
     Dosage: UNK
     Route: 065
  19. PYRAZINAMIDE [Concomitant]
     Active Substance: PYRAZINAMIDE
     Indication: Disseminated tuberculosis
  20. PYRAZINAMIDE [Concomitant]
     Active Substance: PYRAZINAMIDE
     Indication: Meningitis tuberculous

REACTIONS (1)
  - Myelosuppression [Unknown]
